FAERS Safety Report 17219284 (Version 1)
Quarter: 2019Q4

REPORT INFORMATION
  Report Type: Spontaneous
  Country: LT (occurrence: LT)
  Receive Date: 20191231
  Receipt Date: 20191231
  Transmission Date: 20200122
  Serious: Yes (Life-Threatening, Other)
  Sender: FDA-Public Use
  Company Number: LT-SA-2019SA359230

PATIENT
  Age: 58 Year
  Sex: Female
  Weight: 75 kg

DRUGS (2)
  1. TOUJEO [Suspect]
     Active Substance: INSULIN GLARGINE
     Indication: SUICIDAL IDEATION
     Dosage: 24 VV
     Route: 059
     Dates: start: 20191125, end: 20191125
  2. APIDRA [Suspect]
     Active Substance: INSULIN GLULISINE
     Indication: SUICIDAL IDEATION
     Dosage: 200 VV
     Route: 059
     Dates: start: 20191125, end: 20191125

REACTIONS (2)
  - Hypoglycaemia [Recovered/Resolved]
  - Hypokalaemia [Recovered/Resolved]

NARRATIVE: CASE EVENT DATE: 20191125
